FAERS Safety Report 24688953 (Version 1)
Quarter: 2024Q4

REPORT INFORMATION
  Report Type: Spontaneous
  Country: US (occurrence: US)
  Receive Date: 20241203
  Receipt Date: 20241203
  Transmission Date: 20250114
  Serious: Yes (Death)
  Sender: ROCHE
  Company Number: US-ROCHE-10000144185

PATIENT
  Sex: Female

DRUGS (1)
  1. RITUXAN [Suspect]
     Active Substance: RITUXIMAB
     Indication: Rheumatoid arthritis
     Dosage: STRENGTH 10 MG/ML. DAY 1 DAY 15 REPEAT EVERY 4 MONTHS
     Route: 042
     Dates: start: 201606

REACTIONS (1)
  - Death [Fatal]
